FAERS Safety Report 21296664 (Version 1)
Quarter: 2022Q3

REPORT INFORMATION
  Report Type: Report from Study
  Country: KW (occurrence: KW)
  Receive Date: 20220906
  Receipt Date: 20220906
  Transmission Date: 20221027
  Serious: Yes (Death, Other)
  Sender: FDA-Public Use
  Company Number: KW-JNJFOC-20220904616

PATIENT
  Age: 59 Year
  Sex: Male

DRUGS (1)
  1. BORTEZOMIB [Suspect]
     Active Substance: BORTEZOMIB
     Indication: Plasma cell myeloma
     Dosage: 2.6 MILLIGRAM, 1/WEEK
     Route: 058
     Dates: start: 20201130, end: 20220131

REACTIONS (1)
  - Death [Fatal]

NARRATIVE: CASE EVENT DATE: 20220831
